FAERS Safety Report 10226361 (Version 1)
Quarter: 2014Q2

REPORT INFORMATION
  Report Type: Spontaneous
  Country: US (occurrence: US)
  Receive Date: 20140609
  Receipt Date: 20140609
  Transmission Date: 20141212
  Serious: Yes (Hospitalization, Other)
  Sender: FDA-Public Use
  Company Number: US-GILEAD-2014-0104083

PATIENT
  Age: 82 Year
  Sex: Male

DRUGS (4)
  1. LETAIRIS [Suspect]
     Indication: PRODUCT USED FOR UNKNOWN INDICATION
     Dosage: 10 MG, UNK
     Route: 065
     Dates: start: 20120216
  2. WARFARIN [Concomitant]
  3. ADCIRCA [Concomitant]
  4. LASIX                              /00032601/ [Concomitant]

REACTIONS (4)
  - Intestinal obstruction [Not Recovered/Not Resolved]
  - Gallbladder operation [Unknown]
  - Vomiting [Not Recovered/Not Resolved]
  - Fluid retention [Not Recovered/Not Resolved]
